FAERS Safety Report 9726087 (Version 1)
Quarter: 2013Q4

REPORT INFORMATION
  Report Type: Spontaneous
  Country: FR (occurrence: FR)
  Receive Date: 20131203
  Receipt Date: 20131203
  Transmission Date: 20140711
  Serious: Yes (Hospitalization)
  Sender: FDA-Public Use
  Company Number: FR-JNJFOC-20131117599

PATIENT
  Age: 77 Year
  Sex: Female

DRUGS (10)
  1. XARELTO [Suspect]
     Indication: CEREBROVASCULAR ACCIDENT PROPHYLAXIS
     Route: 048
     Dates: start: 201308, end: 201308
  2. KARDEGIC [Suspect]
     Indication: PRODUCT USED FOR UNKNOWN INDICATION
     Route: 048
     Dates: start: 2011
  3. PARIET [Concomitant]
     Route: 065
  4. HEMIGOXINE NATIVELLE [Concomitant]
     Route: 065
  5. EUPRESSYL [Concomitant]
     Route: 065
  6. TEMERIT [Concomitant]
  7. PRAVASTATIN SODIUM [Concomitant]
     Route: 065
  8. DAFALGAN [Concomitant]
     Route: 065
  9. TEMESTA [Concomitant]
     Route: 065
  10. PROZAC [Concomitant]
     Route: 065

REACTIONS (2)
  - Product measured potency issue [Recovering/Resolving]
  - Ischaemic stroke [Recovering/Resolving]
